FAERS Safety Report 17461288 (Version 1)
Quarter: 2020Q1

REPORT INFORMATION
  Report Type: Spontaneous
  Country: US (occurrence: US)
  Receive Date: 20200213
  Receipt Date: 20200213
  Transmission Date: 20200409
  Serious: Yes (Hospitalization)
  Sender: FDA-Public Use
  Company Number: None

PATIENT
  Age: 54 Year
  Sex: Female

DRUGS (15)
  1. SOMA TAB [Concomitant]
  2. TUMERIC CAP [Concomitant]
  3. IBUPROFEN TAB [Concomitant]
  4. ZANTAC TAB [Concomitant]
  5. COSENTYX [Suspect]
     Active Substance: SECUKINUMAB
     Indication: RHEUMATOID ARTHRITIS
     Dosage: ?          OTHER FREQUENCY:EVERY 4 WEEKS;?
     Route: 058
     Dates: start: 20191211
  6. LYRICA CAP [Concomitant]
  7. MALOXICAM TAB [Concomitant]
  8. GLUCOS/CHROND CAP [Concomitant]
     Dosage: ?          OTHER STRENGTH:500-400;?
  9. LEVOTHYROXINE TAB [Concomitant]
     Active Substance: LEVOTHYROXINE
  10. FLEXERIL TAB [Concomitant]
  11. PRENATAL TAB [Concomitant]
  12. NAPROXEN TAB [Concomitant]
  13. OXYBUTYNIN TAB [Concomitant]
  14. B-COMP/B-12 TAB [Concomitant]
  15. CLARITIN CAP [Concomitant]

REACTIONS (6)
  - Sinusitis [None]
  - Chills [None]
  - Knee operation [None]
  - Condition aggravated [None]
  - Pain [None]
  - Rash [None]
